FAERS Safety Report 4426090-8 (Version None)
Quarter: 2004Q3

REPORT INFORMATION
  Report Type: 
  Country: None (occurrence: None)
  Receive Date: 20040811
  Receipt Date: 20040723
  Transmission Date: 20050211
  Serious: Yes (Death)
  Sender: FDA-Public Use
  Company Number: D01200401197

PATIENT
  Age: 83 Year
  Sex: Female

DRUGS (11)
  1. FONDAPARINUX) - SOLUTION - UNIT DOSE: UNKNOWN [Suspect]
     Indication: ANGINA PECTORIS
     Dosage: 2.5 MG QD   SUBCUTANEOUS
     Route: 058
     Dates: start: 20040402, end: 20040405
  2. FONDAPARINUX) - SOLUTION - UNIT DOSE: UNKNOWN [Suspect]
     Indication: MYOCARDIAL INFARCTION
     Dosage: 2.5 MG QD   SUBCUTANEOUS
     Route: 058
     Dates: start: 20040402, end: 20040405
  3. ASPIRIN [Concomitant]
  4. CLOPIDOGREL [Concomitant]
  5. TIROFIBAN [Concomitant]
  6. ISOSORBIDE DINITRATE [Concomitant]
  7. AGRASTAT (TIROFIBAN HYDROCHLORIDE) [Concomitant]
  8. MOLSIDOMINE [Concomitant]
  9. SPIRONOLACTONE [Concomitant]
  10. POTASSIUM CHLORIDE [Concomitant]
  11. ZOCOR [Concomitant]

REACTIONS (7)
  - CARDIAC PROCEDURE COMPLICATION [None]
  - CATHETER RELATED COMPLICATION [None]
  - CORONARY ARTERY OCCLUSION [None]
  - CORONARY ARTERY THROMBOSIS [None]
  - DRUG INEFFECTIVE [None]
  - ELECTROMECHANICAL DISSOCIATION [None]
  - MYOCARDIAL INFARCTION [None]
